FAERS Safety Report 10746819 (Version 1)
Quarter: 2015Q1

REPORT INFORMATION
  Report Type: Report from Study
  Country: US (occurrence: US)
  Receive Date: 20150129
  Receipt Date: 20150129
  Transmission Date: 20150721
  Serious: Yes (Other)
  Sender: FDA-Public Use
  Company Number: PHEH2015US001731

PATIENT
  Sex: Male

DRUGS (1)
  1. GLEEVEC [Suspect]
     Active Substance: IMATINIB MESYLATE
     Indication: GASTRIC CANCER
     Dosage: 400 MG, BID
     Route: 048

REACTIONS (5)
  - Cardiac disorder [Unknown]
  - Malignant neoplasm progression [Recovering/Resolving]
  - Gastric cancer [Recovering/Resolving]
  - Dyspnoea [Unknown]
  - Off label use [Unknown]
